FAERS Safety Report 21622136 (Version 1)
Quarter: 2022Q4

REPORT INFORMATION
  Report Type: Report from Study
  Country: US (occurrence: US)
  Receive Date: 20221121
  Receipt Date: 20221121
  Transmission Date: 20230113
  Serious: Yes (Other)
  Sender: FDA-Public Use
  Company Number: US-MYLANLABS-202200316681

PATIENT
  Sex: Male

DRUGS (1)
  1. LYRICA [Suspect]
     Active Substance: PREGABALIN
     Indication: Diabetes mellitus
     Dosage: 75 MILLIGRAM, QID (75 MG, 4X/DAY)
     Route: 048

REACTIONS (5)
  - Neuropathy peripheral [Unknown]
  - Condition aggravated [Unknown]
  - Intentional product misuse [Unknown]
  - Pain [Unknown]
  - Off label use [Unknown]
